FAERS Safety Report 8530205-X (Version None)
Quarter: 2012Q3

REPORT INFORMATION
  Report Type: 
  Country: None (occurrence: None)
  Receive Date: 20120723
  Receipt Date: 20120719
  Transmission Date: 20120928
  Serious: Yes (Other)
  Sender: FDA-Public Use
  Company Number: PHEH2011US00475

PATIENT
  Sex: Female

DRUGS (10)
  1. METRONIDAZOLE [Concomitant]
     Dosage: 500 MG
  2. SYMBICORT [Concomitant]
  3. CALCITRIOL [Concomitant]
  4. ESTRING [Concomitant]
     Dosage: 2 MG, Q3MO
  5. ETHAMBUTOL HYDROCHLORIDE [Concomitant]
     Dosage: 400 MG,
  6. AZITHROMYCIN [Concomitant]
     Dosage: 250 MG,
  7. CLINDAMYCIN [Concomitant]
     Dosage: 300 MG
  8. ZOMETA [Suspect]
     Dosage: 4 MG, Q2MO
     Dates: start: 20040101, end: 20080101
  9. SYNTHROID [Concomitant]
     Dosage: 1 MG,
  10. XOPENEX HFA [Concomitant]

REACTIONS (28)
  - PRIMARY SEQUESTRUM [None]
  - BREAST CANCER [None]
  - DYSPNOEA [None]
  - PLEURAL EFFUSION [None]
  - BACK PAIN [None]
  - OSTEOPENIA [None]
  - INFECTION [None]
  - THYROID DISORDER [None]
  - ROAD TRAFFIC ACCIDENT [None]
  - INJURY [None]
  - INTERVERTEBRAL DISC DISORDER [None]
  - LUNG NEOPLASM [None]
  - MYCOBACTERIUM AVIUM COMPLEX INFECTION [None]
  - DEFORMITY [None]
  - PHYSICAL DISABILITY [None]
  - SCOLIOSIS [None]
  - OSTEONECROSIS OF JAW [None]
  - PAIN [None]
  - ANXIETY [None]
  - BRONCHIECTASIS [None]
  - EMOTIONAL DISTRESS [None]
  - EXPOSED BONE IN JAW [None]
  - HYPOTENSION [None]
  - INTERVERTEBRAL DISC DEGENERATION [None]
  - PELVIC PAIN [None]
  - OSTEOPOROSIS [None]
  - BONE LESION [None]
  - CHRONIC OBSTRUCTIVE PULMONARY DISEASE [None]
